FAERS Safety Report 5787649-9 (Version None)
Quarter: 2008Q2

REPORT INFORMATION
  Report Type: 
  Country: None (occurrence: None)
  Receive Date: 20080625
  Receipt Date: 20080407
  Transmission Date: 20081010
  Serious: No
  Sender: FDA-Public Use
  Company Number: US-ASTRAZENECA-2007UW25390

PATIENT
  Age: 54 Year
  Sex: Female
  Weight: 77.1 kg

DRUGS (3)
  1. PULMICORT FLEXHALER [Suspect]
     Indication: ASTHMA
     Route: 055
     Dates: start: 20071025
  2. VITAMINS [Concomitant]
  3. CRESTOR [Concomitant]
     Route: 048

REACTIONS (3)
  - ASTHMA [None]
  - DRUG INEFFECTIVE [None]
  - NERVOUSNESS [None]
